FAERS Safety Report 8534160-8 (Version None)
Quarter: 2012Q3

REPORT INFORMATION
  Report Type: 
  Country: None (occurrence: None)
  Receive Date: 20120724
  Receipt Date: 20120712
  Transmission Date: 20120928
  Serious: Yes (Other)
  Sender: FDA-Public Use
  Company Number: BR-ACTELION-A-CH2011-59037

PATIENT
  Age: 33 Year
  Sex: Female
  Weight: 77 kg

DRUGS (9)
  1. WARFARIN SODIUM [Concomitant]
  2. SILDENAFIL [Concomitant]
     Dosage: 20 MG, TID
     Route: 048
     Dates: start: 20090401, end: 20111227
  3. PREDNISONE [Concomitant]
  4. SILDENAFIL [Concomitant]
     Dosage: 25 MG, TID
     Route: 048
     Dates: start: 20120508
  5. ACETAMINOPHEN [Concomitant]
  6. BOSENTAN [Suspect]
     Indication: PULMONARY ARTERIAL HYPERTENSION
     Dosage: 125 MG, BID
     Route: 048
     Dates: start: 20100625, end: 20111227
  7. FUROSEMIDE [Concomitant]
  8. DIGOXIN [Concomitant]
  9. SPIRONOLACTONE [Concomitant]

REACTIONS (3)
  - PREMATURE DELIVERY [None]
  - PREGNANCY [None]
  - NORMAL NEWBORN [None]
